FAERS Safety Report 18181517 (Version 4)
Quarter: 2021Q1

REPORT INFORMATION
  Report Type: Spontaneous
  Country: US (occurrence: US)
  Receive Date: 20200821
  Receipt Date: 20210112
  Transmission Date: 20210419
  Serious: Yes (Disabling, Other)
  Sender: FDA-Public Use
  Company Number: US-ALEXION-A202012074

PATIENT
  Age: 72 Year
  Sex: Female
  Weight: 64.4 kg

DRUGS (4)
  1. OMEPRAZOLE. [Suspect]
     Active Substance: OMEPRAZOLE
     Indication: GASTROOESOPHAGEAL REFLUX DISEASE
     Dosage: UNK
     Route: 065
  2. MERCAPTOPURINE. [Concomitant]
     Active Substance: MERCAPTOPURINE
     Indication: GASTROOESOPHAGEAL REFLUX DISEASE
     Dosage: UNK
     Route: 065
  3. STRENSIQ [Suspect]
     Active Substance: ASFOTASE ALFA
     Indication: HYPOPHOSPHATASIA
     Dosage: 63 ML, 6 DAYS A WEEK
     Route: 058
     Dates: start: 20161030
  4. CITRACAL MAX [Concomitant]
     Active Substance: CALCIUM CITRATE\CHOLECALCIFEROL
     Indication: HYPOPHOSPHATASIA
     Dosage: 4 TABLETS, QD
     Route: 048

REACTIONS (24)
  - Intervertebral disc degeneration [Not Recovered/Not Resolved]
  - Fall [Unknown]
  - Myalgia [Not Recovered/Not Resolved]
  - Muscle oedema [Recovered/Resolved]
  - Gastrointestinal disorder [Not Recovered/Not Resolved]
  - Limb injury [Not Recovered/Not Resolved]
  - Polyp [Recovered/Resolved]
  - Balance disorder [Unknown]
  - Injection site erythema [Not Recovered/Not Resolved]
  - Femur fracture [Recovered/Resolved]
  - Road traffic accident [Recovered/Resolved]
  - Spondylolisthesis [Not Recovered/Not Resolved]
  - Bone pain [Not Recovered/Not Resolved]
  - Autoimmune disorder [Not Recovered/Not Resolved]
  - Depression [Not Recovered/Not Resolved]
  - Tinnitus [Not Recovered/Not Resolved]
  - Somnolence [Not Recovered/Not Resolved]
  - Bone formation increased [Unknown]
  - Asthenia [Unknown]
  - Injection site pruritus [Not Recovered/Not Resolved]
  - Fatigue [Not Recovered/Not Resolved]
  - Injection site pain [Not Recovered/Not Resolved]
  - Neck pain [Not Recovered/Not Resolved]
  - Blood alkaline phosphatase increased [Unknown]

NARRATIVE: CASE EVENT DATE: 2019
